FAERS Safety Report 19372881 (Version 2)
Quarter: 2021Q3

REPORT INFORMATION
  Report Type: Report from Study
  Country: US (occurrence: US)
  Receive Date: 20210603
  Receipt Date: 20210729
  Transmission Date: 20211014
  Serious: No
  Sender: FDA-Public Use
  Company Number: NVSC2021US125130

PATIENT
  Sex: Male

DRUGS (1)
  1. COSENTYX [Suspect]
     Active Substance: SECUKINUMAB
     Indication: PSORIASIS
     Dosage: 300 MG (EVERY WEEK X 5 WEEKS THEN EVERY 4)
     Route: 058
     Dates: start: 202104

REACTIONS (4)
  - Photosensitivity reaction [Unknown]
  - Movement disorder [Unknown]
  - Pain in extremity [Unknown]
  - Arthralgia [Unknown]
